FAERS Safety Report 26193974 (Version 1)
Quarter: 2025Q4

REPORT INFORMATION
  Report Type: Other
  Country: EU (occurrence: EU)
  Receive Date: 20251224
  Receipt Date: 20251224
  Transmission Date: 20260117
  Serious: Yes (Other)
  Sender: Atnahs Healthcare
  Company Number: None

PATIENT

DRUGS (9)
  1. DIAZEPAM [Interacting]
     Active Substance: DIAZEPAM
     Indication: Bipolar disorder
     Dosage: 20 MG, DAILY
     Route: 048
  2. GABAPENTIN [Interacting]
     Active Substance: GABAPENTIN
     Indication: Diabetic neuropathy
     Dosage: 600 MG, DAILY
     Route: 048
  3. ZUCLOPENTHIXOL [Interacting]
     Active Substance: ZUCLOPENTHIXOL
     Indication: Bipolar disorder
     Dosage: 100 MG, DAILY
     Route: 048
  4. QUETIAPINE [Interacting]
     Active Substance: QUETIAPINE
     Indication: Bipolar disorder
     Dosage: 400 MG, DAILY
     Route: 048
  5. TROPATEPINE HYDROCHLORIDE [Interacting]
     Active Substance: TROPATEPINE HYDROCHLORIDE
     Indication: Wrong patient
     Dosage: 1 DOSAGE FORM, DAILY
     Route: 048
     Dates: start: 20251024, end: 20251105
  6. OXAZEPAM [Interacting]
     Active Substance: OXAZEPAM
     Indication: Wrong patient
     Dosage: 3 DOSAGE FORM, DAILY
     Route: 048
     Dates: start: 20251024, end: 20251105
  7. BRINTELLIX [Interacting]
     Active Substance: VORTIOXETINE HYDROBROMIDE
     Indication: Wrong patient
     Dosage: 1 DOSAGE FORM, DAILY
     Route: 048
     Dates: start: 20251024, end: 20251105
  8. LOXAPINE SUCCINATE [Interacting]
     Active Substance: LOXAPINE SUCCINATE
     Indication: Wrong patient
     Dosage: 100 MG, DAILY
     Route: 048
     Dates: start: 20251024, end: 20251105
  9. LAMOTRIGINE [Interacting]
     Active Substance: LAMOTRIGINE
     Indication: Bipolar disorder
     Dosage: 75 MG, DAILY
     Route: 048
     Dates: start: 20251019

REACTIONS (3)
  - Somnolence [Recovered/Resolved]
  - Tremor [Recovered/Resolved]
  - Drug interaction [Recovered/Resolved]

NARRATIVE: CASE EVENT DATE: 20251024
